FAERS Safety Report 23135094 (Version 10)
Quarter: 2024Q2

REPORT INFORMATION
  Report Type: Report from Study
  Country: BE (occurrence: BE)
  Receive Date: 20231101
  Receipt Date: 20240514
  Transmission Date: 20240715
  Serious: Yes (Hospitalization, Other)
  Sender: FDA-Public Use
  Company Number: BE-ORG100013279-013328

PATIENT
  Age: 85 Year
  Sex: Male

DRUGS (26)
  1. TAMSULOSIN [Suspect]
     Active Substance: TAMSULOSIN
     Indication: Benign prostatic hyperplasia
     Dosage: 0.4 MILLIGRAM, QD
     Route: 048
     Dates: end: 20231004
  2. TAMSULOSIN [Suspect]
     Active Substance: TAMSULOSIN
     Indication: Prostatomegaly
  3. BUMETANIDE [Suspect]
     Active Substance: BUMETANIDE
     Indication: Cardiac failure
     Dosage: 1 MILLIGRAM, QD
     Route: 048
     Dates: start: 20230927, end: 20231004
  4. BUMETANIDE [Suspect]
     Active Substance: BUMETANIDE
     Dosage: 1 MILLIGRAM, QOD
     Route: 048
     Dates: start: 20231004
  5. DAPAGLIFLOZIN [Suspect]
     Active Substance: DAPAGLIFLOZIN
     Indication: Cardiac failure
     Dosage: 10 MILLIGRAM, QD
     Route: 048
     Dates: start: 20230315, end: 20231004
  6. DAPAGLIFLOZIN [Suspect]
     Active Substance: DAPAGLIFLOZIN
     Dosage: 10 MILLIGRAM, QD
     Route: 048
  7. EDOXABAN [Suspect]
     Active Substance: EDOXABAN
     Indication: Thrombosis prophylaxis
     Dosage: 30 MILLIGRAM, QD
     Route: 048
     Dates: start: 20230315, end: 20231004
  8. EDOXABAN [Suspect]
     Active Substance: EDOXABAN
     Dosage: 30 MILLIGRAM, QD
     Route: 048
     Dates: start: 20230924
  9. SACUBITRIL\VALSARTAN [Suspect]
     Active Substance: SACUBITRIL\VALSARTAN
     Indication: Cardiac failure
     Dosage: 0.5 MILLIGRAM, BID
     Route: 048
  10. EDOXABAN TOSYLATE [Suspect]
     Active Substance: EDOXABAN TOSYLATE
     Indication: Thrombosis prophylaxis
     Dosage: 30 MILLIGRAM, QD
     Route: 048
  11. ENTRESTO [Concomitant]
     Active Substance: SACUBITRIL\VALSARTAN
     Indication: Product used for unknown indication
     Dosage: UNK, BID
     Route: 065
     Dates: start: 20231004
  12. ENTRESTO [Concomitant]
     Active Substance: SACUBITRIL\VALSARTAN
     Dosage: 0.5 MILLIGRAM, BID
     Route: 065
     Dates: start: 20230522, end: 20231004
  13. BISOPROLOL [Concomitant]
     Active Substance: BISOPROLOL\BISOPROLOL FUMARATE
     Indication: Hypertension
     Dosage: 2.5 MILLIGRAM, QD
     Route: 048
     Dates: start: 20230426
  14. SIMVASTATIN [Concomitant]
     Active Substance: SIMVASTATIN
     Indication: Hypercholesterolaemia
     Dosage: 20 MILLIGRAM, Q6H
     Route: 048
  15. SIMVASTATIN [Concomitant]
     Active Substance: SIMVASTATIN
     Dosage: 20 MILLIGRAM, QD
     Route: 048
  16. SPIRONOLACTONE [Concomitant]
     Active Substance: SPIRONOLACTONE
     Indication: Cardiac failure
     Dosage: 25 MILLIGRAM, QID
     Route: 048
     Dates: end: 20231004
  17. SPIRONOLACTONE [Concomitant]
     Active Substance: SPIRONOLACTONE
     Dosage: 25 MILLIGRAM, QD
     Route: 048
     Dates: start: 20231006
  18. Pantomed [Concomitant]
     Indication: Gastric ulcer
     Dosage: 40 MILLIGRAM, QD
     Route: 048
  19. CORDARONE [Concomitant]
     Active Substance: AMIODARONE HYDROCHLORIDE
     Indication: Atrial fibrillation
     Dosage: 200 MILLIGRAM, QD
     Route: 048
     Dates: end: 20230309
  20. ENOXAPARIN SODIUM [Concomitant]
     Active Substance: ENOXAPARIN SODIUM
     Indication: Thrombosis
     Dosage: 40 MILLIGRAM, QID NUMBER OF UNITS IN INTERVAL: 6 TIME INTERVAL UNIT: HOUR, 40 MG, QID (0.25/DAY)
     Route: 058
     Dates: start: 20231004
  21. SODIUM BICARBONATE [Concomitant]
     Active Substance: SODIUM BICARBONATE
     Indication: Prophylaxis against dehydration
     Dosage: 3 GRAM, QD (1 G, THRICE DAILY), 0.33 DAY
     Route: 048
     Dates: start: 20230920
  22. 1-ALPHA LEO [Concomitant]
     Indication: Vitamin D deficiency
     Dosage: 0.25 MICROGRAM, QD (0.25  DAY)
     Route: 048
     Dates: start: 20230523
  23. FENOTEROL HYDROBROMIDE [Concomitant]
     Active Substance: FENOTEROL HYDROBROMIDE
     Indication: Pneumonia
     Dosage: UNK, QID 50/20 UG PER DOSE (0.1 UNIT) FOUR TIMES DAILY (QID)
     Route: 055
  24. ACORAMIDIS [Concomitant]
     Active Substance: ACORAMIDIS
     Indication: Cardiac amyloidosis
     Dosage: UNK LAST DOSE PRIOR EVENT ONSET 30-SEP-2023
     Route: 065
     Dates: start: 20220816, end: 20220930
  25. ZOLPIDEM [Concomitant]
     Active Substance: ZOLPIDEM TARTRATE
     Dosage: 10 MILLIGRAM, ONCE/SINGLE
     Route: 048
  26. DARBEPOETIN ALFA [Concomitant]
     Active Substance: DARBEPOETIN ALFA
     Indication: Product used for unknown indication
     Dosage: 40 MICROGRAM, Q2W, 40 UG, QOW (40 ?G, EVERY 2 WEEKS (Q2W))
     Route: 058

REACTIONS (12)
  - Acute kidney injury [Recovering/Resolving]
  - Hypotension [Unknown]
  - Loss of consciousness [Unknown]
  - Cardiac failure [Recovered/Resolved]
  - Pneumonia [Recovered/Resolved]
  - Atrioventricular block [Recovered/Resolved]
  - Dehydration [Recovered/Resolved]
  - Atrial fibrillation [Recovered/Resolved]
  - Cardiomegaly [Unknown]
  - Dizziness [Unknown]
  - Presyncope [Unknown]
  - Wrong technique in product usage process [Unknown]

NARRATIVE: CASE EVENT DATE: 20230227
